FAERS Safety Report 13307033 (Version 1)
Quarter: 2017Q1

REPORT INFORMATION
  Report Type: Report from Study
  Country: DE (occurrence: DE)
  Receive Date: 20170308
  Receipt Date: 20170308
  Transmission Date: 20170428
  Serious: Yes (Hospitalization)
  Sender: FDA-Public Use
  Company Number: DE-INGENUS PHARMACEUTICALS NJ, LLC-ING201702-000102

PATIENT
  Age: 58 Year
  Sex: Male

DRUGS (1)
  1. PROBENECID AND COLCHICINE [Suspect]
     Active Substance: COLCHICINE\PROBENECID

REACTIONS (5)
  - Overdose [Unknown]
  - Thrombocytopenia [Unknown]
  - Hepatic enzyme increased [Unknown]
  - Abdominal pain [Unknown]
  - Diarrhoea [Unknown]
